FAERS Safety Report 23945874 (Version 2)
Quarter: 2024Q3

REPORT INFORMATION
  Report Type: Spontaneous
  Country: US (occurrence: US)
  Receive Date: 20240606
  Receipt Date: 20240701
  Transmission Date: 20241017
  Serious: No
  Sender: PFIZER
  Company Number: US-PFIZER INC-PV202400073404

PATIENT
  Age: 15 Year
  Sex: Male
  Weight: 57.143 kg

DRUGS (4)
  1. CIBINQO [Suspect]
     Active Substance: ABROCITINIB
     Indication: Dermatitis atopic
     Dosage: 100 MG DAILY
     Route: 048
     Dates: start: 20240205, end: 20240226
  2. CIBINQO [Suspect]
     Active Substance: ABROCITINIB
     Dosage: 200 MG ONCE DAILY FOR 2 WEEKS
     Route: 048
     Dates: start: 20240227, end: 20240311
  3. CIBINQO [Suspect]
     Active Substance: ABROCITINIB
     Dosage: 100 MG DAILY
     Route: 048
     Dates: start: 20240312
  4. TRIAMCINOLONE ACETONIDE [Concomitant]
     Active Substance: TRIAMCINOLONE ACETONIDE
     Dosage: APPLY THIN LAYER TO AFFECTED AREAS TWICE A DAY FOR 2
     Route: 061

REACTIONS (1)
  - White blood cell count decreased [Recovered/Resolved]

NARRATIVE: CASE EVENT DATE: 20240320
